FAERS Safety Report 8709992 (Version 3)
Quarter: 2013Q1

REPORT INFORMATION
  Report Type: Spontaneous
  Country: US (occurrence: US)
  Receive Date: 20120806
  Receipt Date: 20130222
  Transmission Date: 20140127
  Serious: Yes (Hospitalization)
  Sender: FDA-Public Use
  Company Number: US-TEVA-350677USA

PATIENT
  Age: 55 Year
  Sex: Male

DRUGS (3)
  1. TREANDA [Suspect]
     Route: 042
  2. RITUXIMAB [Concomitant]
  3. ALLOPURINOL [Concomitant]

REACTIONS (4)
  - Stevens-Johnson syndrome [Not Recovered/Not Resolved]
  - Gastrointestinal tract irritation [Unknown]
  - Neutropenia [Unknown]
  - Thrombocytopenia [Unknown]
